FAERS Safety Report 9493850 (Version 1)
Quarter: 2013Q3

REPORT INFORMATION
  Report Type: Spontaneous
  Country: JP (occurrence: JP)
  Receive Date: 20130902
  Receipt Date: 20130902
  Transmission Date: 20140515
  Serious: Yes (Other)
  Sender: FDA-Public Use
  Company Number: JP-ROCHE-1266940

PATIENT
  Sex: 0
  Weight: 3.08 kg

DRUGS (1)
  1. RIVOTRIL [Suspect]
     Indication: PRODUCT USED FOR UNKNOWN INDICATION
     Route: 064

REACTIONS (3)
  - Umbilical cord around neck [Unknown]
  - Asphyxia [Unknown]
  - Maternal exposure timing unspecified [Unknown]
